FAERS Safety Report 7811615-2 (Version None)
Quarter: 2011Q4

REPORT INFORMATION
  Report Type: 
  Country: None (occurrence: None)
  Receive Date: 20111013
  Receipt Date: 20111010
  Transmission Date: 20120403
  Serious: Yes (Other)
  Sender: FDA-Public Use
  Company Number: US-TEVA-304490USA

PATIENT
  Age: 88 Year
  Sex: Male

DRUGS (8)
  1. MIRTAZAPINE [Suspect]
  2. CLOPIDOGREL [Suspect]
  3. PRAVASTATIN [Suspect]
  4. VERAPAMIL [Suspect]
  5. FELODIPINE [Suspect]
  6. PREDNISONE [Suspect]
     Dosage: AS NEEDED.
  7. TORSEMIDE [Suspect]
  8. ALLOPURINOL [Suspect]

REACTIONS (4)
  - GAIT DISTURBANCE [None]
  - CEREBROVASCULAR ACCIDENT [None]
  - ABNORMAL BEHAVIOUR [None]
  - FALL [None]
